FAERS Safety Report 17445648 (Version 1)
Quarter: 2020Q1

REPORT INFORMATION
  Report Type: Spontaneous
  Country: GB (occurrence: GB)
  Receive Date: 20200221
  Receipt Date: 20200221
  Transmission Date: 20200409
  Serious: Yes (Other)
  Sender: FDA-Public Use
  Company Number: GB-JNJFOC-20200226196

PATIENT
  Age: 48 Year
  Sex: Female
  Weight: 82.45 kg

DRUGS (5)
  1. TOPAMAX [Suspect]
     Active Substance: TOPIRAMATE
     Indication: PRODUCT USED FOR UNKNOWN INDICATION
     Dosage: 50 AND 100MG
     Route: 048
     Dates: start: 20190807, end: 20190906
  2. SALBUTAMOL [Concomitant]
     Active Substance: ALBUTEROL
  3. LIOTHYRONINE SODIUM. [Concomitant]
     Active Substance: LIOTHYRONINE SODIUM
     Route: 065
  4. LEVOTHYROXINE. [Concomitant]
     Active Substance: LEVOTHYROXINE
     Route: 065
  5. SERETIDE [Concomitant]
     Active Substance: FLUTICASONE PROPIONATE\SALMETEROL XINAFOATE

REACTIONS (3)
  - Judgement impaired [Recovered/Resolved]
  - Thinking abnormal [Recovered/Resolved]
  - Blindness [Recovered/Resolved with Sequelae]

NARRATIVE: CASE EVENT DATE: 2019
